FAERS Safety Report 6956172-8 (Version None)
Quarter: 2010Q3

REPORT INFORMATION
  Report Type: 
  Country: None (occurrence: None)
  Receive Date: 20100830
  Receipt Date: 20100817
  Transmission Date: 20110219
  Serious: Yes (Hospitalization)
  Sender: FDA-Public Use
  Company Number: PHHY2010FR54650

PATIENT
  Sex: Female

DRUGS (6)
  1. RASILEZ [Suspect]
     Indication: HYPERTENSION
     Dosage: 150 MG, QD
     Route: 048
     Dates: start: 20100427, end: 20100628
  2. TEGRETOL [Suspect]
     Dosage: 400 MG, QD
     Route: 048
     Dates: start: 20100507, end: 20100625
  3. ZYPREXA [Suspect]
     Indication: BIPOLAR DISORDER
     Dosage: 20 MG, QD
     Route: 048
     Dates: start: 20100430, end: 20100628
  4. MEPRONIZINE [Suspect]
     Dosage: UNK
     Route: 048
     Dates: start: 20100512, end: 20100628
  5. LYSANXIA [Concomitant]
     Indication: BIPOLAR DISORDER
     Dosage: UNK
     Route: 048
  6. TRIDESONIT [Concomitant]

REACTIONS (9)
  - DRUG RASH WITH EOSINOPHILIA AND SYSTEMIC SYMPTOMS [None]
  - EOSINOPHILIA [None]
  - EPSTEIN-BARR VIRUS INFECTION [None]
  - HEPATIC ENZYME INCREASED [None]
  - HEPATITIS A [None]
  - LICHENOID KERATOSIS [None]
  - PYREXIA [None]
  - RASH ERYTHEMATOUS [None]
  - TOXIC SKIN ERUPTION [None]
